FAERS Safety Report 6312355-1 (Version None)
Quarter: 2009Q3

REPORT INFORMATION
  Report Type: 
  Country: None (occurrence: None)
  Receive Date: 20090817
  Receipt Date: 20090811
  Transmission Date: 20100115
  Serious: Yes (Other)
  Sender: FDA-Public Use
  Company Number: PHHY2009GT33539

PATIENT
  Age: 44 Year
  Sex: Female

DRUGS (5)
  1. TEGRETOL [Suspect]
     Indication: TRIGEMINAL NEURALGIA
     Dosage: 200 MG, BID
     Route: 048
     Dates: start: 20090401
  2. PAROXETINE HCL [Concomitant]
  3. EUTIROX [Concomitant]
  4. MELOXICAM [Concomitant]
  5. RIVOTRIL [Concomitant]
     Dosage: 2 MG ONE QUARTER OF A TABLET PO HS

REACTIONS (3)
  - SOMNOLENCE [None]
  - VERTIGO [None]
  - WEIGHT INCREASED [None]
